FAERS Safety Report 4564797-2 (Version None)
Quarter: 2005Q1

REPORT INFORMATION
  Report Type: 
  Country: None (occurrence: None)
  Receive Date: 20050128
  Receipt Date: 20050114
  Transmission Date: 20050727
  Serious: Yes (Other)
  Sender: FDA-Public Use
  Company Number: JP-MERCK-0501USA02748

PATIENT
  Age: 13 Year
  Sex: Female

DRUGS (5)
  1. DOXORUBICIN [Suspect]
     Indication: ACUTE LYMPHOCYTIC LEUKAEMIA
     Route: 065
     Dates: start: 19880614
  2. ELSPAR [Suspect]
     Indication: ACUTE LYMPHOCYTIC LEUKAEMIA
     Route: 042
     Dates: start: 19880614
  3. VINCRISTINE SULFATE [Suspect]
     Indication: ACUTE LYMPHOCYTIC LEUKAEMIA
     Route: 065
     Dates: start: 19880614
  4. MERCAPTOPURINE [Suspect]
     Indication: ACUTE LYMPHOCYTIC LEUKAEMIA
     Route: 065
     Dates: start: 19880614
  5. PREDNISOLONE [Suspect]
     Indication: ACUTE LYMPHOCYTIC LEUKAEMIA
     Route: 065
     Dates: start: 19880614

REACTIONS (8)
  - ANTITHROMBIN III DECREASED [None]
  - BACK PAIN [None]
  - BLOOD FIBRINOGEN DECREASED [None]
  - CEREBRAL INFARCTION [None]
  - CEREBRAL THROMBOSIS [None]
  - OSTEONECROSIS [None]
  - OSTEOPOROSIS [None]
  - PLASMINOGEN DECREASED [None]
